FAERS Safety Report 11898277 (Version 1)
Quarter: 2016Q1

REPORT INFORMATION
  Report Type: Spontaneous
  Country: US (occurrence: None)
  Receive Date: 20160107
  Receipt Date: 20160107
  Transmission Date: 20160526
  Serious: Yes (Hospitalization)
  Sender: FDA-Public Use
  Company Number: None

PATIENT
  Age: 20 Year
  Sex: Male
  Weight: 49 kg

DRUGS (1)
  1. PONATINIB [Suspect]
     Active Substance: PONATINIB
     Indication: MALIGNANT NEOPLASM OF UNKNOWN PRIMARY SITE
     Route: 048
     Dates: start: 20150825, end: 20151020

REACTIONS (8)
  - Hypoxia [None]
  - Hypotension [None]
  - Dehydration [None]
  - Disease progression [None]
  - Tachycardia [None]
  - Somnolence [None]
  - Hypophagia [None]
  - Transaminases increased [None]

NARRATIVE: CASE EVENT DATE: 20151103
